FAERS Safety Report 12535369 (Version 2)
Quarter: 2016Q3

REPORT INFORMATION
  Report Type: Spontaneous
  Country: HK (occurrence: HK)
  Receive Date: 20160707
  Receipt Date: 20160824
  Transmission Date: 20161109
  Serious: Yes (Life-Threatening, Hospitalization, Other)
  Sender: FDA-Public Use
  Company Number: HK-ACCORD-042173

PATIENT
  Age: 11 Year
  Sex: Female
  Weight: 38 kg

DRUGS (3)
  1. SODIUM BICARBONATE. [Concomitant]
     Active Substance: SODIUM BICARBONATE
     Indication: URINE ALKALINISATION THERAPY
     Dosage: 40 MMOL/L
  2. METHOTREXATE. [Suspect]
     Active Substance: METHOTREXATE
     Indication: OSTEOSARCOMA
     Dosage: 12 G/M2
  3. CALCIUM FOLINATE/FOLINIC ACID [Concomitant]
     Dosage: INCREASED FROM 2.3 G/DAY TO 4 G/DAY
     Route: 040

REACTIONS (4)
  - Toxicity to various agents [Recovered/Resolved]
  - Renal failure [Recovered/Resolved]
  - Hepatic failure [Recovered/Resolved]
  - Septic shock [Recovered/Resolved]
